FAERS Safety Report 8919906 (Version 1)
Quarter: 2012Q4

REPORT INFORMATION
  Report Type: 
  Country: US (occurrence: US)
  Receive Date: 20121121
  Receipt Date: 20121121
  Transmission Date: 20130627
  Serious: No
  Sender: FDA-Public Use
  Company Number: US-009507513-1211USA006318

PATIENT
  Age: 31 None
  Sex: Female
  Weight: 97.51 kg

DRUGS (1)
  1. NUVARING [Suspect]
     Indication: CONTRACEPTION
     Dosage: 3 week ring
     Route: 067
     Dates: start: 200911

REACTIONS (5)
  - Mood swings [Recovering/Resolving]
  - Muscle spasms [Recovering/Resolving]
  - Headache [Recovering/Resolving]
  - Device expulsion [Unknown]
  - Product shape issue [Unknown]
